FAERS Safety Report 23124219 (Version 1)
Quarter: 2023Q4

REPORT INFORMATION
  Report Type: Spontaneous
  Country: US (occurrence: None)
  Receive Date: 20231027
  Receipt Date: 20231027
  Transmission Date: 20240110
  Serious: Yes (Hospitalization)
  Sender: FDA-Public Use
  Company Number: None

PATIENT
  Age: 70 Year
  Sex: Female
  Weight: 60.6 kg

DRUGS (2)
  1. VERZENIO [Suspect]
     Active Substance: ABEMACICLIB
     Indication: Breast cancer
     Dosage: FREQUENCY : TWICE A DAY;?
     Route: 048
     Dates: start: 20221110, end: 20230919
  2. ARIMIDEX [Concomitant]
     Active Substance: ANASTROZOLE
     Dates: start: 20220925, end: 20230919

REACTIONS (7)
  - Pneumonia viral [None]
  - Atypical pneumonia [None]
  - Pulmonary embolism [None]
  - Respiratory failure [None]
  - Pneumonitis [None]
  - Interstitial lung disease [None]
  - Therapy cessation [None]

NARRATIVE: CASE EVENT DATE: 20230918
